FAERS Safety Report 21108059 (Version 12)
Quarter: 2024Q2

REPORT INFORMATION
  Report Type: Spontaneous
  Country: US (occurrence: US)
  Receive Date: 20220720
  Receipt Date: 20240524
  Transmission Date: 20240716
  Serious: Yes (Hospitalization, Other)
  Sender: FDA-Public Use
  Company Number: US-SA-SAC00000000235130

PATIENT
  Age: 83 Year
  Sex: Female

DRUGS (3)
  1. DUPIXENT [Suspect]
     Active Substance: DUPILUMAB
     Indication: Dermatitis atopic
     Dosage: 300 MG, QOW
     Route: 058
     Dates: start: 202206, end: 2022
  2. DUPIXENT [Suspect]
     Active Substance: DUPILUMAB
     Dosage: 300 MG, QOW
     Route: 058
  3. LATANOPROST [Concomitant]
     Active Substance: LATANOPROST
     Dosage: UNK

REACTIONS (13)
  - Dementia [Unknown]
  - Illness [Unknown]
  - Delirium [Unknown]
  - Dementia Alzheimer^s type [Unknown]
  - Hypotension [Unknown]
  - Cardiac disorder [Unknown]
  - Dizziness [Unknown]
  - Cataract [Unknown]
  - Glaucoma [Unknown]
  - Dry eye [Unknown]
  - Psychotic disorder [Unknown]
  - Insomnia [Unknown]
  - Rash [Unknown]

NARRATIVE: CASE EVENT DATE: 20220101
